FAERS Safety Report 5767172-8 (Version None)
Quarter: 2008Q2

REPORT INFORMATION
  Report Type: 
  Country: None (occurrence: None)
  Receive Date: 20080612
  Receipt Date: 20080529
  Transmission Date: 20081010
  Serious: Yes (Life-Threatening)
  Sender: FDA-Public Use
  Company Number: NO-GENENTECH-261279

PATIENT
  Sex: Male
  Weight: 80 kg

DRUGS (4)
  1. BEVACIZUMAB [Suspect]
     Indication: METASTATIC MALIGNANT MELANOMA
     Dosage: 800 MG, Q2W
     Route: 042
     Dates: start: 20080421
  2. OXYCODONE HCL [Concomitant]
     Indication: PAIN
  3. OXYCONTIN [Concomitant]
  4. VALSARTAN [Concomitant]
     Indication: HYPERTENSION

REACTIONS (1)
  - ANAPHYLACTIC REACTION [None]
